FAERS Safety Report 8059479-9 (Version None)
Quarter: 2012Q1

REPORT INFORMATION
  Report Type: 
  Country: None (occurrence: None)
  Receive Date: 20120120
  Receipt Date: 20120111
  Transmission Date: 20120608
  Serious: Yes (Hospitalization)
  Sender: FDA-Public Use
  Company Number: FR-SANOFI-AVENTIS-2012SA001912

PATIENT
  Age: 56 Year
  Sex: Male

DRUGS (2)
  1. PLAVIX [Suspect]
     Route: 048
     Dates: start: 20080201, end: 20111101
  2. PLAVIX [Suspect]
     Indication: SURGERY
     Route: 048
     Dates: start: 20080201, end: 20111101

REACTIONS (1)
  - PANNICULITIS [None]
